FAERS Safety Report 5845219-8 (Version None)
Quarter: 2008Q3

REPORT INFORMATION
  Report Type: 
  Country: None (occurrence: None)
  Receive Date: 20080814
  Receipt Date: 20080811
  Transmission Date: 20090109
  Serious: Yes (Life-Threatening, Hospitalization, Disabling, Other)
  Sender: FDA-Public Use
  Company Number: A0741994A

PATIENT
  Age: 36 Year
  Sex: Female

DRUGS (2)
  1. LAMICTAL [Suspect]
     Indication: BIPOLAR DISORDER
     Dosage: 400MG PER DAY
     Route: 048
     Dates: start: 20060101, end: 20080801
  2. WELLBUTRIN [Concomitant]

REACTIONS (4)
  - MACULAR OEDEMA [None]
  - PRURITUS [None]
  - RESPIRATORY DISTRESS [None]
  - URTICARIA [None]
